FAERS Safety Report 8247063 (Version 14)
Quarter: 2013Q3

REPORT INFORMATION
  Report Type: Report from Study
  Country: HU (occurrence: HU)
  Receive Date: 20111116
  Receipt Date: 20130715
  Transmission Date: 20140515
  Serious: Yes (Death, Hospitalization, Other)
  Sender: FDA-Public Use
  Company Number: HU-BRISTOL-MYERS SQUIBB COMPANY-16228934

PATIENT
  Age: 73 Year
  Sex: Male

DRUGS (5)
  1. MERCKFORMIN [Suspect]
     Indication: TYPE 2 DIABETES MELLITUS
     Dosage: BEFORE RANDMIZATION-2FEB12,1500MG?3FEB12-CONT, 2000MG
     Dates: end: 20110903
  2. DIAPREL [Suspect]
     Indication: TYPE 2 DIABETES MELLITUS
     Dates: end: 20110830
  3. HUMULIN INSULIN [Suspect]
     Indication: TYPE 2 DIABETES MELLITUS
     Dosage: 1 DF: 32 UNIT NOS,32IU/U
     Dates: start: 20110908
  4. PLACEBO [Suspect]
     Indication: TYPE 2 DIABETES MELLITUS
     Dates: start: 20110214, end: 20111116
  5. ASPIRIN [Concomitant]

REACTIONS (3)
  - Pancreatic carcinoma metastatic [Fatal]
  - Hyperglycaemia [Recovered/Resolved with Sequelae]
  - Jaundice [Not Recovered/Not Resolved]
